FAERS Safety Report 8784769 (Version 2)
Quarter: 2012Q4

REPORT INFORMATION
  Report Type: Report from Study
  Country: US (occurrence: US)
  Receive Date: 20120914
  Receipt Date: 20120919
  Transmission Date: 20130627
  Serious: Yes (Hospitalization)
  Sender: FDA-Public Use
  Company Number: US-SANOFI-AVENTIS-2012SA065538

PATIENT
  Age: 68 Year
  Sex: Male

DRUGS (18)
  1. JEVTANA [Suspect]
     Indication: PROSTATE CANCER
     Route: 041
     Dates: start: 20120824, end: 20120824
  2. ACETAMINOPHEN [Concomitant]
     Route: 048
  3. ALL OTHER THERAPEUTIC PRODUCTS [Concomitant]
     Route: 047
  4. ASPIRIN [Concomitant]
     Route: 048
  5. BISACODYL [Concomitant]
     Route: 048
  6. ENOXAPARIN [Concomitant]
     Route: 058
  7. FENOFIBRATE [Concomitant]
     Route: 048
  8. HYDROMORPHONE [Concomitant]
     Route: 048
  9. MAGNESIUM SULFATE [Concomitant]
     Route: 042
  10. METFORMIN [Concomitant]
     Route: 048
  11. ONDANSETRON HYDROCHLORIDE [Concomitant]
  12. OXYCODONE [Concomitant]
     Route: 048
  13. POTASSIUM CHLORIDE [Concomitant]
     Route: 042
  14. PREDNISONE [Concomitant]
     Route: 048
  15. DOCUSATE SODIUM/SENNOSIDE A+B [Concomitant]
     Route: 048
  16. SODIUM CHLORIDE [Concomitant]
  17. SODIUM CHLORIDE [Concomitant]
     Route: 042
  18. VALSARTAN [Concomitant]
     Route: 048

REACTIONS (3)
  - Cerebrovascular accident [Recovered/Resolved with Sequelae]
  - Muscular weakness [Not Recovered/Not Resolved]
  - Cranial nerve disorder [Not Recovered/Not Resolved]
